FAERS Safety Report 22105499 (Version 6)
Quarter: 2024Q2

REPORT INFORMATION
  Report Type: Report from Study
  Country: BR (occurrence: BR)
  Receive Date: 20230317
  Receipt Date: 20240528
  Transmission Date: 20240715
  Serious: Yes (Other)
  Sender: FDA-Public Use
  Company Number: BR-Merck Healthcare KGaA-9381569

PATIENT
  Age: 35 Year
  Sex: Female

DRUGS (1)
  1. INTERFERON BETA-1A [Suspect]
     Active Substance: INTERFERON BETA-1A
     Indication: Multiple sclerosis
     Dosage: DEVICE: REBIJECT II.
     Route: 058
     Dates: start: 20200414

REACTIONS (3)
  - Papilloma [Not Recovered/Not Resolved]
  - Benign enlargement of the subarachnoid spaces [Unknown]
  - Arachnoid cyst [Unknown]

NARRATIVE: CASE EVENT DATE: 20210901
